FAERS Safety Report 5125822-3 (Version None)
Quarter: 2006Q4

REPORT INFORMATION
  Report Type: 
  Country: None (occurrence: None)
  Receive Date: 20061012
  Receipt Date: 20061002
  Transmission Date: 20070319
  Serious: Yes (Other)
  Sender: FDA-Public Use
  Company Number: GB-ABBOTT-06P-167-0345691-00

PATIENT
  Age: 57 Year
  Sex: Female

DRUGS (3)
  1. ERYTHROPED A [Interacting]
     Indication: SINUSITIS
     Route: 048
     Dates: start: 20060904, end: 20060905
  2. PAROXETINE HCL [Suspect]
     Indication: DRUG USE FOR UNKNOWN INDICATION
     Route: 048
     Dates: start: 20060726, end: 20060823
  3. TRAMADOL HCL [Concomitant]
     Indication: DRUG USE FOR UNKNOWN INDICATION

REACTIONS (6)
  - DELIRIUM [None]
  - DISORIENTATION [None]
  - DRUG INTERACTION [None]
  - HALLUCINATION [None]
  - HYPERHIDROSIS [None]
  - PYREXIA [None]
